FAERS Safety Report 14979098 (Version 1)
Quarter: 2018Q2

REPORT INFORMATION
  Report Type: Spontaneous
  Country: US (occurrence: US)
  Receive Date: 20180515
  Receipt Date: 20180515
  Transmission Date: 20180711
  Serious: No
  Sender: FDA-Public Use
  Company Number: None

PATIENT
  Age: 33 Year
  Sex: Female
  Weight: 47.63 kg

DRUGS (1)
  1. COPAXONE [Suspect]
     Active Substance: GLATIRAMER ACETATE
     Indication: MULTIPLE SCLEROSIS
     Route: 058
     Dates: start: 20171213, end: 20180515

REACTIONS (6)
  - Vomiting [None]
  - Mass [None]
  - Diarrhoea [None]
  - Flushing [None]
  - Dyspnoea [None]
  - Nausea [None]

NARRATIVE: CASE EVENT DATE: 20180514
